FAERS Safety Report 17889477 (Version 2)
Quarter: 2020Q2

REPORT INFORMATION
  Report Type: Report from Study
  Country: JP (occurrence: JP)
  Receive Date: 20200612
  Receipt Date: 20200617
  Transmission Date: 20200714
  Serious: Yes (Hospitalization)
  Sender: FDA-Public Use
  Company Number: JP-PFIZER INC-2019-06843

PATIENT
  Age: 31 Year
  Sex: Female
  Weight: 69.8 kg

DRUGS (13)
  1. CETUXIMAB. [Suspect]
     Active Substance: CETUXIMAB
     Indication: COLORECTAL CANCER
     Dosage: 452.5 MG, WEEKLY (250MG/M2)
     Route: 042
     Dates: start: 20190807, end: 20191120
  2. WHITE PETROLATUM [Concomitant]
     Active Substance: PETROLATUM
     Dosage: 1 DF, AS NEEDED (1 APPLICATION)
     Route: 062
     Dates: start: 20191030
  3. FENTANYL CITRATE. [Concomitant]
     Active Substance: FENTANYL CITRATE
     Indication: TUMOUR PAIN
     Dosage: 1 MG, DAILY
     Route: 062
     Dates: start: 20191113, end: 20191121
  4. HYDROXYZINE PAMOATE. [Concomitant]
     Active Substance: HYDROXYZINE PAMOATE
     Dosage: 25 MG, AS NEEDED
     Route: 048
     Dates: start: 20191118, end: 20191120
  5. SODIUM GUALENATE [Concomitant]
     Active Substance: SODIUM GUALENATE
     Dosage: UNK, AS NEEDED
     Dates: start: 20190829
  6. LANSOPRAZOLE. [Concomitant]
     Active Substance: LANSOPRAZOLE
     Dosage: 15 MG, DAILY
     Route: 048
     Dates: start: 20190911
  7. MAGNESIUM OXIDE. [Concomitant]
     Active Substance: MAGNESIUM OXIDE
     Indication: CONSTIPATION
     Dosage: 330 MG, AS NEEDED
     Route: 048
     Dates: start: 20190806
  8. OXYCODONE [OXYCODONE HYDROCHLORIDE] [Concomitant]
     Active Substance: OXYCODONE HYDROCHLORIDE
     Indication: TUMOUR PAIN
     Dosage: 5 MG, AS NEEDED
     Route: 048
     Dates: start: 20190803
  9. DEXAMETHASONE DIPROPIONATE [Concomitant]
     Active Substance: DEXAMETHASONE DIPROPIONATE
     Indication: DERMATITIS ACNEIFORM
     Dosage: 1 DF, AS NEEDED (1 APPLICATION)
     Route: 062
     Dates: start: 20190902
  10. PROCHLORPERAZINE MALEATE. [Concomitant]
     Active Substance: PROCHLORPERAZINE MALEATE
     Dosage: 5 MG, AS NEEDED
     Route: 048
     Dates: start: 20191113, end: 20191120
  11. BINIMETINIB [Suspect]
     Active Substance: BINIMETINIB
     Indication: COLORECTAL CANCER
     Dosage: 45 MG, 2X/DAY
     Route: 048
     Dates: start: 20190807, end: 20191120
  12. HEPARINOID [Concomitant]
     Active Substance: CHONDROITIN SULFATE (BOVINE)
     Dosage: 1 DF, AS NEEDED (1 APPLICATION)
     Route: 062
     Dates: start: 20190806
  13. ENCORAFENIB [Suspect]
     Active Substance: ENCORAFENIB
     Indication: COLORECTAL CANCER
     Dosage: 300 MG, 1X/DAY
     Route: 048
     Dates: start: 20190807, end: 20191120

REACTIONS (3)
  - Nausea [Recovered/Resolved]
  - Vomiting [Recovered/Resolved]
  - Decreased appetite [Recovered/Resolved]

NARRATIVE: CASE EVENT DATE: 20191121
